FAERS Safety Report 7777428 (Version 4)
Quarter: 2013Q4

REPORT INFORMATION
  Report Type: Spontaneous
  Country: US (occurrence: US)
  Receive Date: 20110128
  Receipt Date: 20131118
  Transmission Date: 20140711
  Serious: Yes (Hospitalization)
  Sender: FDA-Public Use
  Company Number: US-BAYER-201024230NA

PATIENT
  Age: 28 Year
  Sex: Female
  Weight: 74.83 kg

DRUGS (6)
  1. YAZ [Suspect]
     Indication: ACNE
     Dosage: 1 DF, QD
     Dates: start: 2008, end: 2010
  2. YAZ [Suspect]
     Indication: CONTRACEPTION
  3. YAZ [Suspect]
     Indication: PREMENSTRUAL DYSPHORIC DISORDER
  4. IBUPROF [Concomitant]
  5. VICODIN [Concomitant]
  6. LEVAQUIN [Concomitant]

REACTIONS (5)
  - Cholelithiasis [None]
  - Cholecystitis chronic [None]
  - Injury [None]
  - Abdominal pain [None]
  - Dyspepsia [None]
